FAERS Safety Report 6139993-3 (Version None)
Quarter: 2009Q2

REPORT INFORMATION
  Report Type: 
  Country: None (occurrence: None)
  Receive Date: 20090401
  Receipt Date: 20090318
  Transmission Date: 20091009
  Serious: No
  Sender: FDA-Public Use
  Company Number: DE-PFIZER INC-2009173952

PATIENT

DRUGS (1)
  1. NICOTINE [Suspect]
     Indication: SMOKING CESSATION THERAPY
     Dosage: 10 MG, 3 TIES WITHIN 5 MINUTES
     Route: 055

REACTIONS (1)
  - DYSPNOEA [None]
